FAERS Safety Report 7705419-9 (Version None)
Quarter: 2011Q3

REPORT INFORMATION
  Report Type: 
  Country: None (occurrence: None)
  Receive Date: 20110823
  Receipt Date: 20110823
  Transmission Date: 20111222
  Serious: Yes (Hospitalization)
  Sender: FDA-Public Use
  Company Number: None

PATIENT
  Sex: Male
  Weight: 33.2 kg

DRUGS (4)
  1. VINCRISTINE SULFATE [Suspect]
     Dosage: 1.6 MG
     Dates: end: 20110815
  2. DAUNORUBICIN HCL [Suspect]
     Dosage: 27 MG
     Dates: end: 20110815
  3. PREDNISONE [Suspect]
     Dosage: 5 MG
     Dates: end: 20110815
  4. CYTARABINE [Suspect]
     Dosage: 70 MG
     Dates: end: 20110815

REACTIONS (6)
  - ELECTROLYTE IMBALANCE [None]
  - HEPATIC ENZYME INCREASED [None]
  - PULMONARY OEDEMA [None]
  - PANCREATITIS [None]
  - FLUID OVERLOAD [None]
  - TUMOUR LYSIS SYNDROME [None]
